FAERS Safety Report 6883025-6 (Version None)
Quarter: 2010Q3

REPORT INFORMATION
  Report Type: 
  Country: None (occurrence: None)
  Receive Date: 20100729
  Receipt Date: 20100720
  Transmission Date: 20110219
  Serious: Yes (Hospitalization, Other)
  Sender: FDA-Public Use
  Company Number: US-TEVA-242056USA

PATIENT
  Sex: Male

DRUGS (1)
  1. FINASTERIDE,TABLETS USP 5 MG [Suspect]
     Indication: PROSTATIC DISORDER
     Route: 048
     Dates: start: 20100113, end: 20100116

REACTIONS (4)
  - DIZZINESS [None]
  - ERECTILE DYSFUNCTION [None]
  - RENAL FAILURE [None]
  - SUICIDAL IDEATION [None]
